FAERS Safety Report 9171152 (Version 2)
Quarter: 2013Q2

REPORT INFORMATION
  Report Type: Spontaneous
  Country: GB (occurrence: None)
  Receive Date: 20130308
  Receipt Date: 20130411
  Transmission Date: 20140414
  Serious: Yes (Other)
  Sender: FDA-Public Use
  Company Number: 1616639

PATIENT
  Age: 46 Year
  Sex: Female

DRUGS (26)
  1. CYTARABINE [Suspect]
     Indication: ACUTE MYELOID LEUKAEMIA
     Dates: start: 20110819, end: 20110828
  2. CYTARABINE [Suspect]
     Indication: MYELODYSPLASTIC SYNDROME
     Dates: start: 20110819, end: 20110828
  3. ETOPOSIDE [Suspect]
     Indication: ACUTE MYELOID LEUKAEMIA
     Dates: start: 20110819, end: 20110828
  4. ETOPOSIDE [Suspect]
     Indication: MYELODYSPLASTIC SYNDROME
     Dates: start: 20110819, end: 20110828
  5. VANCOMYCIN HYDROCHLORIDE [Suspect]
     Indication: PRODUCT USED FOR UNKNOWN INDICATION
     Route: 042
     Dates: start: 20110904, end: 20110909
  6. MEROPENEM [Suspect]
     Indication: PRODUCT USED FOR UNKNOWN INDICATION
     Dates: start: 20110905, end: 20110910
  7. AMPHOTERICIN B [Suspect]
     Indication: PRODUCT USED FOR UNKNOWN INDICATION
     Route: 042
     Dates: start: 20110831, end: 20110831
  8. DAUNORUBICIN [Suspect]
     Indication: ACUTE MYELOID LEUKAEMIA
     Dates: start: 20110819, end: 20110828
  9. DAUNORUBICIN [Suspect]
     Indication: MYELODYSPLASTIC SYNDROME
     Dates: start: 20110819, end: 20110828
  10. PIPERACILLIN + TAZOBACTAM [Suspect]
     Indication: PRODUCT USED FOR UNKNOWN INDICATION
     Route: 042
     Dates: start: 20110822, end: 20110825
  11. GEMTUZUMAB OZOGAMICIN [Suspect]
     Indication: ACUTE MYELOID LEUKAEMIA
     Dates: start: 20110819, end: 20110828
  12. GEMTUZUMAB OZOGAMICIN [Suspect]
     Indication: MYELODYSPLASTIC SYNDROME
     Dates: start: 20110819, end: 20110828
  13. NORETHISTERONE [Suspect]
     Indication: PRODUCT USED FOR UNKNOWN INDICATION
     Dates: start: 20110818
  14. ALLOPURINOL [Concomitant]
  15. DOCUSATE SODIUM [Concomitant]
  16. CYCLIZINE [Concomitant]
  17. ACICLOVIR [Concomitant]
  18. TRANEXAMIC ACID [Concomitant]
  19. HUMANT ANTI-D IMMUGLOBULIN [Concomitant]
  20. LORAZEPAM [Concomitant]
  21. ONDANSETRON [Concomitant]
  22. PARACETAMOL [Concomitant]
  23. CODEINE [Concomitant]
  24. MORPHINE SULFATE [Concomitant]
  25. RANITIDINE [Concomitant]
  26. OMEPRAZOLE [Concomitant]

REACTIONS (3)
  - Alanine aminotransferase increased [None]
  - Platelet count increased [None]
  - Platelet count decreased [None]
